FAERS Safety Report 25086602 (Version 2)
Quarter: 2025Q2

REPORT INFORMATION
  Report Type: Spontaneous
  Country: US (occurrence: None)
  Receive Date: 20250317
  Receipt Date: 20250403
  Transmission Date: 20250716
  Serious: Yes (Death, Hospitalization)
  Sender: MDD OPERATIONS
  Company Number: US-MDD US Operations-MDD202501-000065

PATIENT
  Age: 66 Year
  Sex: Female

DRUGS (1)
  1. APOKYN [Suspect]
     Active Substance: APOMORPHINE HYDROCHLORIDE
     Indication: Parkinson^s disease
     Route: 058
     Dates: start: 20250106

REACTIONS (4)
  - Death [Fatal]
  - Pneumonia aspiration [Unknown]
  - Hypoxia [Unknown]
  - Dizziness [Recovered/Resolved]

NARRATIVE: CASE EVENT DATE: 20250106
